FAERS Safety Report 15752683 (Version 1)
Quarter: 2018Q4

REPORT INFORMATION
  Report Type: Spontaneous
  Country: FR (occurrence: FR)
  Receive Date: 20181221
  Receipt Date: 20181221
  Transmission Date: 20190205
  Serious: Yes (Other)
  Sender: FDA-Public Use
  Company Number: FR-009507513-1812FRA007401

PATIENT
  Age: 50 Year
  Sex: Female
  Weight: 62 kg

DRUGS (2)
  1. RIBAVIRIN. [Suspect]
     Active Substance: RIBAVIRIN
     Indication: CHRONIC HEPATITIS C
     Route: 048
     Dates: start: 201704, end: 201706
  2. SOVALDI [Suspect]
     Active Substance: SOFOSBUVIR
     Indication: CHRONIC HEPATITIS C
     Route: 048
     Dates: start: 201704, end: 201706

REACTIONS (2)
  - Hepatitis C [Not Recovered/Not Resolved]
  - Hepatitis C RNA positive [Not Recovered/Not Resolved]

NARRATIVE: CASE EVENT DATE: 201710
